FAERS Safety Report 9432080 (Version 1)
Quarter: 2013Q3

REPORT INFORMATION
  Report Type: Spontaneous
  Country: TR (occurrence: None)
  Receive Date: 20130726
  Receipt Date: 20130726
  Transmission Date: 20140515
  Serious: Yes (Hospitalization)
  Sender: FDA-Public Use
  Company Number: 2013P1012825

PATIENT
  Age: 24 Year
  Sex: Male

DRUGS (2)
  1. TELMISARTAN [Suspect]
     Dosage: 2.6/1.6GM
  2. METFORMIN [Suspect]

REACTIONS (3)
  - Suicide attempt [None]
  - Alanine aminotransferase increased [None]
  - Incorrect dose administered [None]
